FAERS Safety Report 8139279-1 (Version None)
Quarter: 2012Q1

REPORT INFORMATION
  Report Type: 
  Country: None (occurrence: None)
  Receive Date: 20120215
  Receipt Date: 20120208
  Transmission Date: 20120608
  Serious: Yes (Hospitalization, Other)
  Sender: FDA-Public Use
  Company Number: SE-PFIZER INC-2012033884

PATIENT
  Sex: Female

DRUGS (1)
  1. TERRA-CORTRIL POLYMYXIN B [Suspect]
     Indication: OTITIS MEDIA ACUTE
     Dosage: UNK
     Dates: start: 20110801, end: 20110801

REACTIONS (2)
  - TINNITUS [None]
  - DEPRESSION [None]
